FAERS Safety Report 4915408-5 (Version None)
Quarter: 2006Q1

REPORT INFORMATION
  Report Type: 
  Country: None (occurrence: None)
  Receive Date: 20060217
  Receipt Date: 20050823
  Transmission Date: 20060701
  Serious: Yes (Disabling)
  Sender: FDA-Public Use
  Company Number: US-MERCK-0508USA03924

PATIENT
  Age: 49 Year
  Sex: Female
  Weight: 50 kg

DRUGS (9)
  1. VIOXX [Suspect]
     Indication: SPINA BIFIDA
     Route: 048
     Dates: start: 19990101, end: 20020727
  2. DEPO-PROVERA [Concomitant]
     Route: 051
  3. LOPRESSOR [Concomitant]
     Route: 065
     Dates: start: 20010101
  4. ASPIRIN [Concomitant]
     Route: 065
     Dates: start: 20020202
  5. LIPITOR [Concomitant]
     Route: 065
     Dates: start: 20020202
  6. WELLBUTRIN [Concomitant]
     Route: 065
  7. ALEVE [Concomitant]
     Indication: PAIN
     Route: 065
  8. TYLENOL [Concomitant]
     Indication: PAIN
     Route: 065
  9. VIOXX [Suspect]
     Indication: OSTEOARTHRITIS
     Route: 048
     Dates: start: 19990101, end: 20020727

REACTIONS (6)
  - CORONARY ARTERY DISEASE [None]
  - DYSPNOEA [None]
  - GALLBLADDER DISORDER [None]
  - HYPERTENSION [None]
  - INJURY [None]
  - MYOCARDIAL INFARCTION [None]
